FAERS Safety Report 20862720 (Version 1)
Quarter: 2022Q2

REPORT INFORMATION
  Report Type: Other
  Country: IT (occurrence: IT)
  Receive Date: 20220523
  Receipt Date: 20220523
  Transmission Date: 20220721
  Serious: Yes (Other)
  Sender: FDA-Public Use
  Company Number: IT-COLLEGIUM PHARMACEUTICAL, INC.-2022CGM00331

PATIENT
  Age: 84 Year
  Sex: Female

DRUGS (1)
  1. TAPENTADOL [Suspect]
     Active Substance: TAPENTADOL
     Indication: Fracture pain
     Dosage: 1 DOSAGE FORM, 1X/DAY
     Route: 030
     Dates: start: 20220202, end: 20220204

REACTIONS (3)
  - Speech disorder [Recovering/Resolving]
  - Dry mouth [Recovering/Resolving]
  - Vomiting [Recovering/Resolving]

NARRATIVE: CASE EVENT DATE: 20220202
